FAERS Safety Report 9521282 (Version 2)
Quarter: 2013Q3

REPORT INFORMATION
  Report Type: Spontaneous
  Country: CA (occurrence: None)
  Receive Date: 20130821
  Receipt Date: 20130911
  Transmission Date: 20140515
  Serious: Yes (Death, Hospitalization)
  Sender: FDA-Public Use
  Company Number: AECAN201300291

PATIENT
  Age: 75 Year
  Sex: Male
  Weight: 75 kg

DRUGS (8)
  1. GAMUNEX (IMMUNE GLOBULIN IV (HUMAN), CAPRYLATE/CHROMATOGRAPHY PURIFIED) (10 PCT) [Suspect]
     Indication: AUTOIMMUNE HAEMOLYTIC ANAEMIA
     Route: 042
     Dates: start: 20130803, end: 20130803
  2. BISOPROLOL [Concomitant]
  3. DILTIAZEM CD [Concomitant]
  4. HYDROCHLOROTHIAZIDE [Concomitant]
  5. IMIPRAMINE [Concomitant]
  6. PANTOPRAZOLE [Concomitant]
  7. TEMAZEPAM [Concomitant]
  8. PREDNISONE [Concomitant]

REACTIONS (7)
  - Haemolysis [None]
  - Multi-organ failure [None]
  - Blood bilirubin increased [None]
  - Blood lactate dehydrogenase increased [None]
  - Loss of consciousness [None]
  - Hypotension [None]
  - Aspartate aminotransferase increased [None]
